FAERS Safety Report 24090567 (Version 1)
Quarter: 2024Q3

REPORT INFORMATION
  Report Type: Spontaneous
  Country: US (occurrence: None)
  Receive Date: 20240712
  Receipt Date: 20240712
  Transmission Date: 20241017
  Serious: Yes (Other)
  Sender: Public
  Company Number: None

PATIENT
  Age: 66 Year
  Sex: Female
  Weight: 74.25 kg

DRUGS (9)
  1. FLECAINIDE ACETATE [Suspect]
     Active Substance: FLECAINIDE ACETATE
     Indication: Atrial fibrillation
     Dosage: 1 TABLET TWICE A DAY ORAL
     Route: 048
     Dates: start: 20220822, end: 20240627
  2. LISINOPRIL [Concomitant]
     Active Substance: LISINOPRIL
  3. ELIQUIS [Concomitant]
     Active Substance: APIXABAN
  4. LEVOTHYROXINE [Concomitant]
     Active Substance: LEVOTHYROXINE\LEVOTHYROXINE SODIUM
  5. resubistatin calcium [Concomitant]
  6. Glucosamine HCI 1500 mg with MSM 1500 mg [Concomitant]
  7. MINERALS\VITAMINS [Concomitant]
     Active Substance: MINERALS\VITAMINS
  8. COQ 1 [Concomitant]
  9. BIOTIN 5000 [Concomitant]

REACTIONS (1)
  - Visual impairment [None]

NARRATIVE: CASE EVENT DATE: 20240301
